FAERS Safety Report 25362990 (Version 1)
Quarter: 2025Q2

REPORT INFORMATION
  Report Type: Spontaneous
  Country: CN (occurrence: CN)
  Receive Date: 20250527
  Receipt Date: 20250527
  Transmission Date: 20250717
  Serious: Yes (Other)
  Sender: PFIZER
  Company Number: CN-PFIZER INC-PV202500060609

PATIENT
  Age: 45 Year
  Sex: Female
  Weight: 60 kg

DRUGS (6)
  1. EPIRUBICIN HYDROCHLORIDE [Suspect]
     Active Substance: EPIRUBICIN HYDROCHLORIDE
     Indication: Invasive breast carcinoma
     Dates: start: 20250104
  2. EPIRUBICIN HYDROCHLORIDE [Suspect]
     Active Substance: EPIRUBICIN HYDROCHLORIDE
     Dates: start: 20250125
  3. EPIRUBICIN HYDROCHLORIDE [Suspect]
     Active Substance: EPIRUBICIN HYDROCHLORIDE
     Dosage: 145 MG, 1X/DAY
     Route: 041
     Dates: start: 20250308, end: 20250308
  4. CYCLOPHOSPHAMIDE [Suspect]
     Active Substance: CYCLOPHOSPHAMIDE
     Indication: Invasive breast carcinoma
     Dates: start: 20250104
  5. CYCLOPHOSPHAMIDE [Suspect]
     Active Substance: CYCLOPHOSPHAMIDE
     Dates: start: 20250125
  6. CYCLOPHOSPHAMIDE [Suspect]
     Active Substance: CYCLOPHOSPHAMIDE
     Dosage: 950 MG, 1X/DAY
     Route: 041
     Dates: start: 20250308, end: 20250308

REACTIONS (3)
  - Ventricular extrasystoles [Recovering/Resolving]
  - Sinus tachycardia [Recovering/Resolving]
  - Supraventricular extrasystoles [Recovering/Resolving]

NARRATIVE: CASE EVENT DATE: 20250214
